FAERS Safety Report 6511283-6 (Version None)
Quarter: 2009Q4

REPORT INFORMATION
  Report Type: 
  Country: None (occurrence: None)
  Receive Date: 20091222
  Receipt Date: 20090323
  Transmission Date: 20100525
  Serious: No
  Sender: FDA-Public Use
  Company Number: US-ASTRAZENECA-2009UW07380

PATIENT
  Age: 903 Month
  Sex: Male
  Weight: 88.5 kg

DRUGS (5)
  1. CRESTOR [Suspect]
     Route: 048
     Dates: start: 20080301
  2. ZETIA [Concomitant]
  3. METOPROLOL TARTRATE [Concomitant]
  4. ASPIRIN [Concomitant]
  5. FINASTERIDE [Concomitant]

REACTIONS (2)
  - ABDOMINAL DISTENSION [None]
  - FLATULENCE [None]
